FAERS Safety Report 21007619 (Version 2)
Quarter: 2022Q3

REPORT INFORMATION
  Report Type: Spontaneous
  Country: US (occurrence: US)
  Receive Date: 20220626
  Receipt Date: 20220929
  Transmission Date: 20221027
  Serious: No
  Sender: FDA-Public Use
  Company Number: US-ELI_LILLY_AND_COMPANY-US202206011722

PATIENT
  Sex: Female

DRUGS (2)
  1. FORTEO [Suspect]
     Active Substance: TERIPARATIDE
     Indication: Product used for unknown indication
     Dosage: UNK UNK, UNKNOWN
     Route: 065
     Dates: start: 202203
  2. CELEBREX [Concomitant]
     Active Substance: CELECOXIB
     Indication: Pain

REACTIONS (5)
  - Spinal compression fracture [Unknown]
  - Tooth infection [Unknown]
  - Eye swelling [Unknown]
  - Back pain [Unknown]
  - Swelling face [Unknown]
